FAERS Safety Report 10203862 (Version 1)
Quarter: 2014Q2

REPORT INFORMATION
  Report Type: Spontaneous
  Country: US (occurrence: US)
  Receive Date: 20140529
  Receipt Date: 20140529
  Transmission Date: 20141212
  Serious: No
  Sender: FDA-Public Use
  Company Number: US-PFIZER INC-2014144161

PATIENT
  Sex: 0

DRUGS (1)
  1. PREGABALIN [Suspect]
     Dosage: 75 MG, UNK

REACTIONS (5)
  - Dizziness [Unknown]
  - Confusional state [Unknown]
  - Coordination abnormal [Unknown]
  - Gait disturbance [Unknown]
  - Amnesia [Unknown]
